FAERS Safety Report 17415326 (Version 2)
Quarter: 2020Q1

REPORT INFORMATION
  Report Type: Spontaneous
  Country: US (occurrence: US)
  Receive Date: 20200213
  Receipt Date: 20200316
  Transmission Date: 20200409
  Serious: Yes (Other)
  Sender: FDA-Public Use
  Company Number: US-ALLERGAN-2004921US

PATIENT
  Sex: Female

DRUGS (1)
  1. RESTASIS [Suspect]
     Active Substance: CYCLOSPORINE
     Indication: DRY EYE
     Dosage: UNK
     Dates: start: 201810

REACTIONS (5)
  - Cataract operation [Unknown]
  - Multiple use of single-use product [Unknown]
  - Product dropper issue [Unknown]
  - Stent placement [Unknown]
  - Product container issue [Unknown]

NARRATIVE: CASE EVENT DATE: 20181030
